FAERS Safety Report 10027956 (Version 4)
Quarter: 2014Q2

REPORT INFORMATION
  Report Type: Report from Study
  Country: US (occurrence: US)
  Receive Date: 20140321
  Receipt Date: 20140529
  Transmission Date: 20141212
  Serious: Yes (Hospitalization, Other)
  Sender: FDA-Public Use
  Company Number: US-ALEXION PHARMACEUTICALS INC.-A201102157

PATIENT
  Sex: 0

DRUGS (4)
  1. SOLIRIS [Suspect]
     Indication: PAROXYSMAL NOCTURNAL HAEMOGLOBINURIA
     Dosage: 900 MG, Q2W
     Route: 042
     Dates: start: 20080208
  2. SOLIRIS [Suspect]
     Dosage: 1200 MG, Q2W
     Route: 042
  3. PREDNISONE [Concomitant]
     Indication: PRODUCT USED FOR UNKNOWN INDICATION
     Dosage: 30 MG, QD
     Route: 048
  4. PREDNISONE [Concomitant]
     Dosage: 15 MG, QD
     Route: 048

REACTIONS (7)
  - Post procedural fistula [Not Recovered/Not Resolved]
  - Head and neck cancer [Recovered/Resolved]
  - Head and neck cancer [Unknown]
  - Neutropenia [Unknown]
  - Aphagia [Not Recovered/Not Resolved]
  - General physical condition abnormal [Unknown]
  - Infection [Unknown]
